FAERS Safety Report 14821656 (Version 7)
Quarter: 2019Q2

REPORT INFORMATION
  Report Type: Spontaneous
  Country: US (occurrence: US)
  Receive Date: 20180427
  Receipt Date: 20190423
  Transmission Date: 20190711
  Serious: Yes (Other)
  Sender: FDA-Public Use
  Company Number: US-GLAXOSMITHKLINE-US2018GSK069073

PATIENT
  Sex: Male

DRUGS (7)
  1. LANSOPRAZOLE. [Suspect]
     Active Substance: LANSOPRAZOLE
     Indication: PRODUCT USED FOR UNKNOWN INDICATION
     Dosage: UNK
     Route: 065
  2. OMEPRAZOLE. [Suspect]
     Active Substance: OMEPRAZOLE
     Indication: GASTROOESOPHAGEAL REFLUX DISEASE
     Dosage: 20 MG, BID
     Route: 048
  3. PREVACID [Suspect]
     Active Substance: LANSOPRAZOLE
     Indication: PRODUCT USED FOR UNKNOWN INDICATION
     Dosage: 15 MG, QD
     Route: 065
  4. PREVACID [Suspect]
     Active Substance: LANSOPRAZOLE
     Indication: DYSPEPSIA
     Dosage: 40 MG, QD
     Route: 065
  5. OMEPRAZOLE. [Suspect]
     Active Substance: OMEPRAZOLE
     Indication: DYSPEPSIA
  6. PANTOPRAZOLE [Suspect]
     Active Substance: PANTOPRAZOLE
     Indication: PRODUCT USED FOR UNKNOWN INDICATION
     Dosage: 40 MG, QD
     Route: 065
  7. ESOMEPRAZOLE. [Suspect]
     Active Substance: ESOMEPRAZOLE MAGNESIUM
     Indication: PRODUCT USED FOR UNKNOWN INDICATION
     Dosage: UNK
     Route: 065

REACTIONS (20)
  - Renal failure [Unknown]
  - Renal cyst [Unknown]
  - Diabetic nephropathy [Unknown]
  - Renal cell carcinoma [Unknown]
  - Nephrectomy [Unknown]
  - Hypertensive nephropathy [Unknown]
  - Renal embolism [Unknown]
  - Haematuria [Unknown]
  - Renal neoplasm [Unknown]
  - Renal mass [Unknown]
  - Chronic kidney disease [Unknown]
  - Renal injury [Unknown]
  - Nocturia [Unknown]
  - Nephropathy [Unknown]
  - Acute kidney injury [Unknown]
  - Renal vein thrombosis [Unknown]
  - Kidney infection [Unknown]
  - Renal disorder [Unknown]
  - Single functional kidney [Unknown]
  - End stage renal disease [Unknown]
